FAERS Safety Report 12891700 (Version 2)
Quarter: 2016Q4

REPORT INFORMATION
  Report Type: Spontaneous
  Country: US (occurrence: US)
  Receive Date: 20161028
  Receipt Date: 20161206
  Transmission Date: 20170207
  Serious: No
  Sender: FDA-Public Use
  Company Number: US-TAIHO ONCOLOGY INC-EU-2016-02766

PATIENT
  Age: 64 Year
  Sex: Male

DRUGS (11)
  1. LONSURF [Suspect]
     Active Substance: TIPIRACIL HYDROCHLORIDE\TRIFLURIDINE
     Indication: COLON CANCER
     Route: 048
     Dates: start: 20160922
  2. PROTONIX [Concomitant]
     Active Substance: PANTOPRAZOLE SODIUM
     Dosage: NI
  3. FERROUS SULFATE. [Concomitant]
     Active Substance: FERROUS SULFATE
     Dosage: NI
  4. PREDNISONE. [Concomitant]
     Active Substance: PREDNISONE
     Dosage: NI
  5. BENADRYL [Concomitant]
     Active Substance: DIPHENHYDRAMINE HYDROCHLORIDE
     Dosage: NI
  6. ZYRTEC [Concomitant]
     Active Substance: CETIRIZINE HYDROCHLORIDE
     Indication: HYPERSENSITIVITY
     Dosage: NI
  7. ENOXAPARIN [Concomitant]
     Active Substance: ENOXAPARIN
     Dosage: NI
  8. FUROSEMIDE. [Concomitant]
     Active Substance: FUROSEMIDE
     Dosage: NI
  9. OXYCODONE [Concomitant]
     Active Substance: OXYCODONE
     Dosage: NI
  10. POTASSIUM [Concomitant]
     Active Substance: POTASSIUM
     Dosage: NI
  11. SPIRONOLACTONE. [Concomitant]
     Active Substance: SPIRONOLACTONE
     Dosage: NI

REACTIONS (6)
  - Pruritus [Not Recovered/Not Resolved]
  - Diarrhoea [Not Recovered/Not Resolved]
  - Nausea [Not Recovered/Not Resolved]
  - Joint crepitation [Not Recovered/Not Resolved]
  - Fatigue [Not Recovered/Not Resolved]
  - Nervousness [Not Recovered/Not Resolved]

NARRATIVE: CASE EVENT DATE: 201610
